FAERS Safety Report 11188673 (Version 3)
Quarter: 2015Q3

REPORT INFORMATION
  Report Type: Spontaneous
  Country: US (occurrence: US)
  Receive Date: 20150615
  Receipt Date: 20150922
  Transmission Date: 20151125
  Serious: No
  Sender: FDA-Public Use
  Company Number: US-BRISTOL-MYERS SQUIBB COMPANY-BMS-2015-037345

PATIENT
  Sex: Male

DRUGS (2)
  1. PURE BAKING SODA [Interacting]
     Active Substance: SODIUM BICARBONATE
     Indication: NASOPHARYNGITIS
     Route: 065
  2. ABILIFY [Suspect]
     Active Substance: ARIPIPRAZOLE
     Indication: PRODUCT USED FOR UNKNOWN INDICATION
     Route: 065

REACTIONS (3)
  - Drug ineffective [Unknown]
  - Drug interaction [Unknown]
  - Nasopharyngitis [Unknown]
